FAERS Safety Report 6741220-0 (Version None)
Quarter: 2010Q2

REPORT INFORMATION
  Report Type: 
  Country: None (occurrence: None)
  Receive Date: 20100526
  Receipt Date: 20100512
  Transmission Date: 20101027
  Serious: Yes (Hospitalization)
  Sender: FDA-Public Use
  Company Number: PHHY2009AU38413

PATIENT
  Sex: Female

DRUGS (2)
  1. CLOZARIL [Suspect]
     Dosage: 100 MG, UNK
     Dates: start: 19990418, end: 20100510
  2. CLOZARIL [Suspect]
     Dosage: 450 MG
     Dates: end: 20100510

REACTIONS (3)
  - PSYCHIATRIC SYMPTOM [None]
  - THERAPY CESSATION [None]
  - TREATMENT NONCOMPLIANCE [None]
